FAERS Safety Report 9558867 (Version 5)
Quarter: 2013Q4

REPORT INFORMATION
  Report Type: Spontaneous
  Country: BR (occurrence: BR)
  Receive Date: 20130927
  Receipt Date: 20131105
  Transmission Date: 20140711
  Serious: Yes (Other)
  Sender: FDA-Public Use
  Company Number: PHHY2012BR067919

PATIENT
  Age: 65 Year
  Sex: Female
  Weight: 65 kg

DRUGS (12)
  1. GALVUS MET [Suspect]
     Indication: DIABETES MELLITUS
     Dosage: 1 DF (850/50 MG), BID
     Route: 048
  2. GALVUS MET [Suspect]
     Dosage: 1 DF (1000/50 MG), QD
     Dates: end: 20130801
  3. GALVUS MET [Suspect]
     Dosage: 1 DF (1000/50 MG), QD
     Route: 048
  4. GALVUS MET [Suspect]
     Dosage: 2 DF (1000/50 MG), DAILY
  5. HIGROTON [Suspect]
     Indication: HYPERTENSION
     Dosage: 1 DF (25 MG), DAILY
     Route: 048
  6. LOSARTAN [Suspect]
     Indication: HYPERTENSION
     Dosage: 1 DF, SPORADICALLY
  7. LOSARTAN [Suspect]
     Dosage: 1 DF, (50 MG) DAILY
     Route: 048
  8. DIAMICRON MR [Suspect]
     Indication: HYPERTENSION
     Dosage: UNK DF, SPORADICALLY
  9. DIAMICRON MR [Suspect]
     Dosage: 1 DF, DAILY
     Route: 048
  10. AAS [Concomitant]
     Indication: ANTICOAGULANT THERAPY
     Dosage: 1 DF, QD (AT NIGHT)
     Route: 048
  11. BONAGRAN [Concomitant]
     Indication: OSTEOPOROSIS PROPHYLAXIS
     Dosage: 1 DF, QW
     Route: 048
  12. RIVOTRIL [Concomitant]
     Indication: FACIAL SPASM
     Dosage: 1 DF, DAILY
     Route: 048
     Dates: start: 1986

REACTIONS (13)
  - Blood glucose increased [Not Recovered/Not Resolved]
  - Hypoglycaemia [Unknown]
  - Nerve compression [Recovering/Resolving]
  - Intervertebral disc protrusion [Recovering/Resolving]
  - Burning sensation [Recovering/Resolving]
  - Dry mouth [Recovering/Resolving]
  - Thyroid disorder [Not Recovered/Not Resolved]
  - Spinal pain [Recovering/Resolving]
  - Visual impairment [Unknown]
  - Hypoaesthesia [Recovering/Resolving]
  - Blood cholesterol increased [Recovered/Resolved]
  - Malaise [Unknown]
  - Blood glucose fluctuation [Unknown]
